FAERS Safety Report 7777467-4 (Version None)
Quarter: 2011Q3

REPORT INFORMATION
  Report Type: 
  Country: None (occurrence: None)
  Receive Date: 20110926
  Receipt Date: 20110914
  Transmission Date: 20111222
  Serious: Yes (Other)
  Sender: FDA-Public Use
  Company Number: US-BAYER-2011-086324

PATIENT
  Sex: Female

DRUGS (1)
  1. MIRENA [Suspect]
     Dosage: UNK
     Dates: start: 20090101

REACTIONS (4)
  - WEIGHT INCREASED [None]
  - URINARY TRACT INFECTION [None]
  - BREAST TENDERNESS [None]
  - NAUSEA [None]
